FAERS Safety Report 6538805-3 (Version None)
Quarter: 2010Q1

REPORT INFORMATION
  Report Type: 
  Country: None (occurrence: None)
  Receive Date: 20100114
  Receipt Date: 20100114
  Transmission Date: 20100710
  Serious: Yes (Hospitalization, Other)
  Sender: FDA-Public Use
  Company Number: None

PATIENT
  Sex: Male
  Weight: 108.8633 kg

DRUGS (2)
  1. CYMBALTA [Suspect]
     Indication: DEPRESSION
     Dosage: 20, 30, OR 60 1 DAY OTHER
     Dates: start: 20090110, end: 20100108
  2. CYMBALTA [Suspect]
     Indication: PAIN
     Dosage: 20, 30, OR 60 1 DAY OTHER
     Dates: start: 20090110, end: 20100108

REACTIONS (15)
  - BALANCE DISORDER [None]
  - CONVULSION [None]
  - DEPRESSION [None]
  - HEADACHE [None]
  - HYPERHIDROSIS [None]
  - IMPAIRED DRIVING ABILITY [None]
  - MALAISE [None]
  - MARITAL PROBLEM [None]
  - MUSCULAR WEAKNESS [None]
  - MYALGIA [None]
  - PAIN [None]
  - SENSORY LOSS [None]
  - SOMNOLENCE [None]
  - TREMOR [None]
  - WITHDRAWAL SYNDROME [None]
